FAERS Safety Report 13111726 (Version 6)
Quarter: 2017Q2

REPORT INFORMATION
  Report Type: Report from Study
  Country: DE (occurrence: DE)
  Receive Date: 20170113
  Receipt Date: 20170406
  Transmission Date: 20170830
  Serious: Yes (Hospitalization, Other)
  Sender: FDA-Public Use
  Company Number: DE-BRISTOL-MYERS SQUIBB COMPANY-BMS-2017-000151

PATIENT
  Age: 75 Year
  Sex: Male
  Weight: 97 kg

DRUGS (2)
  1. IPILIMUMAB [Suspect]
     Active Substance: IPILIMUMAB
     Indication: METASTATIC MALIGNANT MELANOMA
     Dosage: 3 MG/KG, Q3WK
     Route: 042
     Dates: start: 20161209
  2. NIVOLUMAB [Suspect]
     Active Substance: NIVOLUMAB
     Indication: PRODUCT USED FOR UNKNOWN INDICATION
     Dosage: 3 MG/KG, Q2WK
     Route: 065
     Dates: start: 201606, end: 201610

REACTIONS (12)
  - Pneumonia [Recovered/Resolved]
  - Fatigue [Recovering/Resolving]
  - Flushing [Recovering/Resolving]
  - Decreased appetite [Recovering/Resolving]
  - Haematochezia [Not Recovered/Not Resolved]
  - Hepatic enzyme increased [Recovering/Resolving]
  - General physical health deterioration [Recovering/Resolving]
  - Autoimmune colitis [Recovering/Resolving]
  - Haemoptysis [Recovered/Resolved]
  - Diarrhoea [Recovering/Resolving]
  - Hepatitis [Recovering/Resolving]
  - Gastritis erosive [Recovering/Resolving]

NARRATIVE: CASE EVENT DATE: 201612
